FAERS Safety Report 7572277-5 (Version None)
Quarter: 2011Q2

REPORT INFORMATION
  Report Type: 
  Country: None (occurrence: None)
  Receive Date: 20110624
  Receipt Date: 20110614
  Transmission Date: 20111010
  Serious: Yes (Other)
  Sender: FDA-Public Use
  Company Number: PHHY2011JP52714

PATIENT
  Age: 57 Year
  Sex: Female

DRUGS (3)
  1. ISOSORBIDE [Concomitant]
     Dosage: UNK
  2. ESTRADIOL AND NORETHINDRONE ACETATE [Suspect]
     Dosage: UNK UKN, TWICE PER WEEK
     Route: 062
     Dates: start: 20100304, end: 20101218
  3. BETAHISTINE MESILATE [Concomitant]
     Dosage: UNK

REACTIONS (1)
  - HEPATIC FUNCTION ABNORMAL [None]
